FAERS Safety Report 5663695-0 (Version None)
Quarter: 2008Q1

REPORT INFORMATION
  Report Type: 
  Country: None (occurrence: None)
  Receive Date: 20080307
  Receipt Date: 20080222
  Transmission Date: 20080703
  Serious: Yes (Death, Hospitalization)
  Sender: FDA-Public Use
  Company Number: 2008P1000030

PATIENT
  Age: 65 Year
  Sex: Female

DRUGS (5)
  1. BUSULFAN (BUSULFAN) [Suspect]
     Dosage: IV
     Route: 042
     Dates: start: 20071006, end: 20071008
  2. FLUDARABINE PHOSPHATE [Concomitant]
  3. VALPROATE SODIUM [Concomitant]
  4. METHOTREXATE [Concomitant]
  5. TACROLIMUS [Concomitant]

REACTIONS (14)
  - ANOREXIA [None]
  - BLOOD PRESSURE DECREASED [None]
  - BRONCHIECTASIS [None]
  - DEPRESSED LEVEL OF CONSCIOUSNESS [None]
  - DIARRHOEA [None]
  - ENGRAFTMENT SYNDROME [None]
  - HEART RATE DECREASED [None]
  - HYPOXIA [None]
  - INTERSTITIAL LUNG DISEASE [None]
  - MALAISE [None]
  - NAUSEA [None]
  - PNEUMONIA [None]
  - STOMATITIS [None]
  - VOMITING [None]
